FAERS Safety Report 5097941-1 (Version None)
Quarter: 2006Q3

REPORT INFORMATION
  Report Type: 
  Country: None (occurrence: None)
  Receive Date: 20060905
  Receipt Date: 20060905
  Transmission Date: 20061208
  Serious: Yes (Hospitalization)
  Sender: FDA-Public Use
  Company Number: None

PATIENT
  Age: 51 Year
  Sex: Male

DRUGS (5)
  1. NAPROSYN [Suspect]
     Indication: RHEUMATOID ARTHRITIS
     Dosage: 3 GRAMS 1-2 TIMES DAILY PO
     Route: 048
     Dates: start: 20051128, end: 20060630
  2. SULFASALAZINE [Concomitant]
  3. NAPROXEN [Concomitant]
  4. SULFASALAZINE [Concomitant]
  5. OMEPRAZOLE [Concomitant]

REACTIONS (8)
  - ASTHENIA [None]
  - DIZZINESS [None]
  - DUODENAL ULCER [None]
  - DYSPNOEA [None]
  - HAEMATOCRIT DECREASED [None]
  - HEART RATE INCREASED [None]
  - HYPOTENSION [None]
  - MELAENA [None]
